FAERS Safety Report 9770993 (Version 2)
Quarter: 2014Q1

REPORT INFORMATION
  Report Type: Spontaneous
  Country: US (occurrence: US)
  Receive Date: 20131218
  Receipt Date: 20140128
  Transmission Date: 20141002
  Serious: No
  Sender: FDA-Public Use
  Company Number: US-009507513-1310USA013910

PATIENT
  Sex: Female
  Weight: 72.56 kg

DRUGS (4)
  1. AZASITE [Suspect]
     Indication: BLEPHARITIS
     Dosage: BID, DURATION: 5 DAYS
     Route: 047
     Dates: start: 20131020, end: 20131025
  2. AZASITE [Suspect]
     Indication: CONJUNCTIVITIS ALLERGIC
  3. LOTEMAX [Concomitant]
  4. TIMOPTIC [Concomitant]

REACTIONS (3)
  - Drug hypersensitivity [Recovering/Resolving]
  - Lacrimation increased [Not Recovered/Not Resolved]
  - Conjunctivitis allergic [Not Recovered/Not Resolved]
